FAERS Safety Report 4810688-9 (Version None)
Quarter: 2005Q4

REPORT INFORMATION
  Report Type: 
  Country: None (occurrence: None)
  Receive Date: 20051026
  Receipt Date: 20050916
  Transmission Date: 20060501
  Serious: Yes (Other)
  Sender: FDA-Public Use
  Company Number: US-MERCK-0509USA02642

PATIENT
  Age: 49 Year
  Sex: Female
  Weight: 61 kg

DRUGS (10)
  1. VIOXX [Suspect]
     Indication: ARTHRITIS
     Route: 048
     Dates: start: 20000101, end: 20040901
  2. VIOXX [Suspect]
     Indication: FIBROMYALGIA
     Route: 048
     Dates: start: 20000101, end: 20040901
  3. CARDIZEM [Concomitant]
     Route: 065
  4. SYNTHROID [Concomitant]
     Route: 065
  5. MICARDIS [Concomitant]
     Route: 065
  6. EFFEXOR [Concomitant]
     Route: 065
  7. CLONAZEPAM [Concomitant]
     Route: 065
  8. HYDRODIURIL [Concomitant]
     Route: 065
  9. ESTRADIOL [Concomitant]
     Route: 065
  10. PREVACID [Concomitant]
     Route: 065

REACTIONS (6)
  - ANXIETY [None]
  - CORONARY ARTERY OCCLUSION [None]
  - DEPRESSION [None]
  - MYOCARDIAL INFARCTION [None]
  - PANIC ATTACK [None]
  - STRESS [None]
